FAERS Safety Report 16625397 (Version 2)
Quarter: 2019Q3

REPORT INFORMATION
  Report Type: Spontaneous
  Country: US (occurrence: US)
  Receive Date: 20190724
  Receipt Date: 20190815
  Transmission Date: 20191004
  Serious: No
  Sender: FDA-Public Use
  Company Number: US-PFIZER INC-2019313107

PATIENT
  Sex: Male
  Weight: 88 kg

DRUGS (6)
  1. HYDROCHLOROTHIAZIDE. [Concomitant]
     Active Substance: HYDROCHLOROTHIAZIDE
     Dosage: 12 MG, UNK
  2. LISINOPRIL. [Concomitant]
     Active Substance: LISINOPRIL
     Indication: HYPERTENSION
     Dosage: UNK
  3. FINASTERIDE. [Concomitant]
     Active Substance: FINASTERIDE
     Indication: PROSTATIC DISORDER
     Dosage: UNK
  4. METFORMIN [Concomitant]
     Active Substance: METFORMIN HYDROCHLORIDE
     Indication: DIABETES MELLITUS
     Dosage: 500 MG, UNK
  5. GABAPENTIN. [Suspect]
     Active Substance: GABAPENTIN
     Indication: DIABETIC NEUROPATHY
     Dosage: 600 MG, 1X/DAY((QHS: EVERY BEDTIME))
     Route: 048
     Dates: start: 20150622, end: 20190716
  6. GABAPENTIN. [Suspect]
     Active Substance: GABAPENTIN
     Indication: NEUROPATHY PERIPHERAL
     Dosage: 300 MG, 2X/DAY((BID: TWO TIMES A DAY))
     Route: 048
     Dates: start: 20150622, end: 20190716

REACTIONS (2)
  - Off label use [Unknown]
  - Drug ineffective for unapproved indication [Unknown]
